FAERS Safety Report 6913503-2 (Version None)
Quarter: 2010Q3

REPORT INFORMATION
  Report Type: 
  Country: None (occurrence: None)
  Receive Date: 20100719
  Receipt Date: 20100421
  Transmission Date: 20110219
  Serious: Yes (Other)
  Sender: FDA-Public Use
  Company Number: US-WYE-H14847410

PATIENT
  Age: 56 Year
  Sex: Female
  Weight: 57.66 kg

DRUGS (1)
  1. ADVIL [Suspect]
     Indication: HEADACHE
     Dosage: 1 CAPLET AS NEEDED, ORAL
     Route: 048
     Dates: end: 20100421

REACTIONS (3)
  - SNEEZING [None]
  - UPPER RESPIRATORY TRACT CONGESTION [None]
  - WHEEZING [None]
